FAERS Safety Report 9739173 (Version 2)
Quarter: 2013Q4

REPORT INFORMATION
  Report Type: Spontaneous
  Country: US (occurrence: US)
  Receive Date: 20131209
  Receipt Date: 20131231
  Transmission Date: 20140711
  Serious: No
  Sender: FDA-Public Use
  Company Number: US-BAYER-2013-149821

PATIENT
  Sex: Male

DRUGS (3)
  1. ALEVE CAPLET [Suspect]
     Indication: PAIN
     Dosage: 5 DF, OVER A FEW HOURS
  2. ALEVE CAPLET [Suspect]
     Indication: ARTHRALGIA
  3. ALEVE CAPLET [Suspect]
     Indication: ARTHRITIS

REACTIONS (3)
  - Extra dose administered [None]
  - Extra dose administered [None]
  - Drug ineffective [None]
